FAERS Safety Report 25925196 (Version 1)
Quarter: 2025Q4

REPORT INFORMATION
  Report Type: Spontaneous
  Country: CN (occurrence: CN)
  Receive Date: 20251015
  Receipt Date: 20251015
  Transmission Date: 20260117
  Serious: Yes (Other)
  Sender: PFIZER
  Company Number: CN-PFIZER INC-PV202500120923

PATIENT
  Age: 67 Year
  Sex: Male
  Weight: 67.5 kg

DRUGS (2)
  1. CYTARABINE [Suspect]
     Active Substance: CYTARABINE
     Indication: Acute leukaemia
     Dosage: 100 MG, 2X/DAY
     Route: 041
     Dates: start: 20251007, end: 20251007
  2. OMACETAXINE MEPESUCCINATE [Suspect]
     Active Substance: OMACETAXINE MEPESUCCINATE
     Indication: Acute leukaemia
     Dosage: 3 MG, 1X/DAY
     Route: 041
     Dates: start: 20251007, end: 20251009

REACTIONS (5)
  - Pyrexia [Recovering/Resolving]
  - Generalised oedema [Recovering/Resolving]
  - Swelling face [Recovering/Resolving]
  - Erythema [Recovering/Resolving]
  - Drug hypersensitivity [Recovering/Resolving]

NARRATIVE: CASE EVENT DATE: 20251008
